FAERS Safety Report 7240210-1 (Version None)
Quarter: 2011Q1

REPORT INFORMATION
  Report Type: 
  Country: None (occurrence: None)
  Receive Date: 20110113
  Receipt Date: 20101228
  Transmission Date: 20110831
  Serious: Yes (Death, Hospitalization)
  Sender: FDA-Public Use
  Company Number: UTC-003880

PATIENT
  Age: 83 Year
  Sex: Female
  Weight: 44.5 kg

DRUGS (3)
  1. DIURETICS (DIURETICS) [Concomitant]
  2. PLAVIX [Concomitant]
  3. REMODULIN [Suspect]
     Indication: PULMONARY ARTERIAL HYPERTENSION
     Dosage: 1468.8 UG/KG (1.02 UG/KG, 1 IN 1 MIN), INTRAVENOUS
     Route: 042

REACTIONS (2)
  - ASTHENIA [None]
  - POST PROCEDURAL HAEMORRHAGE [None]
